FAERS Safety Report 6984231-2 (Version None)
Quarter: 2010Q3

REPORT INFORMATION
  Report Type: 
  Country: None (occurrence: None)
  Receive Date: 20100915
  Receipt Date: 20100908
  Transmission Date: 20110219
  Serious: No
  Sender: FDA-Public Use
  Company Number: US-BIOGENIDEC-2010BI020079

PATIENT
  Age: 59 Year
  Sex: Female

DRUGS (3)
  1. TYSABRI [Suspect]
     Indication: MULTIPLE SCLEROSIS
     Route: 042
     Dates: start: 20061101, end: 20091124
  2. TYSABRI [Suspect]
     Route: 042
     Dates: end: 20100410
  3. TYSABRI [Suspect]
     Route: 042
     Dates: start: 20100615

REACTIONS (3)
  - CD4 LYMPHOCYTES DECREASED [None]
  - FATIGUE [None]
  - MUSCULAR WEAKNESS [None]
